FAERS Safety Report 8859989 (Version 1)
Quarter: 2012Q4

REPORT INFORMATION
  Report Type: 
  Country: FR (occurrence: FR)
  Receive Date: 20121025
  Receipt Date: 20121025
  Transmission Date: 20130627
  Serious: Yes (Death, Hospitalization)
  Sender: FDA-Public Use
  Company Number: FR-PFIZER INC-2012263116

PATIENT
  Age: 72 Year
  Sex: Male

DRUGS (2)
  1. ARACYTINE [Suspect]
     Dosage: 1 DF, 1x/day
     Route: 058
     Dates: start: 20100331, end: 20100403
  2. MITOXANTRONE [Suspect]
     Indication: ACUTE MYELOID LEUKAEMIA
     Dosage: UNK
     Route: 042
     Dates: start: 20100311, end: 20100402

REACTIONS (8)
  - Anaphylactic reaction [Fatal]
  - Respiratory distress [Fatal]
  - Dyspnoea [Recovered/Resolved]
  - Dermatitis exfoliative [Recovered/Resolved]
  - Atrial fibrillation [Recovered/Resolved]
  - Dyspnoea [Unknown]
  - Tachypnoea [Unknown]
  - Atrial fibrillation [Unknown]
